FAERS Safety Report 5122604-3 (Version None)
Quarter: 2006Q4

REPORT INFORMATION
  Report Type: 
  Country: None (occurrence: None)
  Receive Date: 20061009
  Receipt Date: 20060925
  Transmission Date: 20070319
  Serious: Yes (Hospitalization)
  Sender: FDA-Public Use
  Company Number: US-JNJFOC-20060500644

PATIENT
  Sex: Female
  Weight: 73.03 kg

DRUGS (2)
  1. ORTHO EVRA [Suspect]
     Indication: CONTRACEPTION
     Route: 062
  2. HYDROXYCUT [Concomitant]

REACTIONS (4)
  - BREAST TENDERNESS [None]
  - INTRA-UTERINE DEATH [None]
  - PULMONARY EMBOLISM [None]
  - UNINTENDED PREGNANCY [None]
